FAERS Safety Report 20735385 (Version 1)
Quarter: 2022Q2

REPORT INFORMATION
  Report Type: Spontaneous
  Country: JP (occurrence: JP)
  Receive Date: 20220421
  Receipt Date: 20220421
  Transmission Date: 20220721
  Serious: Yes (Hospitalization, Other)
  Sender: FDA-Public Use
  Company Number: JP-MSD-M2022-12920

PATIENT
  Age: 74 Year
  Sex: Female

DRUGS (1)
  1. KEYTRUDA [Suspect]
     Active Substance: PEMBROLIZUMAB
     Indication: Lung squamous cell carcinoma stage IV
     Dosage: 200 MILLIGRAM, ONCE EVERY 3 WEEKS, TOTAL NUMBER OF DOSES : 6
     Route: 041

REACTIONS (1)
  - Immune-mediated hepatic disorder [Not Recovered/Not Resolved]

NARRATIVE: CASE EVENT DATE: 20220323
